FAERS Safety Report 11971764 (Version 1)
Quarter: 2016Q1

REPORT INFORMATION
  Report Type: Spontaneous
  Country: CA (occurrence: CA)
  Receive Date: 20160128
  Receipt Date: 20160128
  Transmission Date: 20160526
  Serious: Yes (Other)
  Sender: FDA-Public Use
  Company Number: CA-ROXANE LABORATORIES, INC.-2016-RO-00119RO

PATIENT
  Age: 34 Year
  Sex: Female

DRUGS (1)
  1. PROPRANOLOL HCL ORAL SOLUTION, 20MG/5ML [Suspect]
     Active Substance: PROPRANOLOL HYDROCHLORIDE
     Indication: ESSENTIAL TREMOR
     Dosage: 60 MG
     Route: 065

REACTIONS (1)
  - Somnambulism [Recovered/Resolved]
